FAERS Safety Report 8435936-8 (Version None)
Quarter: 2012Q2

REPORT INFORMATION
  Report Type: 
  Country: None (occurrence: None)
  Receive Date: 20120614
  Receipt Date: 20120529
  Transmission Date: 20120825
  Serious: Yes (Death, Other)
  Sender: FDA-Public Use
  Company Number: NL-CELGENEUS-114-21880-12051167

PATIENT

DRUGS (1)
  1. REVLIMID [Suspect]
     Indication: MULTIPLE MYELOMA
     Route: 048
     Dates: start: 20100819, end: 20101025

REACTIONS (2)
  - DEATH [None]
  - LEUKAEMIA PLASMACYTIC [None]
